FAERS Safety Report 8951605 (Version 1)
Quarter: 2012Q4

REPORT INFORMATION
  Report Type: Report from Study
  Country: BR (occurrence: BR)
  Receive Date: 20121204
  Receipt Date: 20121204
  Transmission Date: 20130627
  Serious: Yes (Life-Threatening, Hospitalization)
  Sender: FDA-Public Use
  Company Number: BR-ROCHE-1045657

PATIENT
  Age: 45 Year
  Sex: Female
  Weight: 69.5 kg

DRUGS (18)
  1. TOCILIZUMAB [Suspect]
     Indication: RHEUMATOID ARTHRITIS
     Dosage: 31/Jan/2012: last dose prior to SAE, Dose:20 mg/ml
     Route: 042
     Dates: start: 20091210, end: 20120131
  2. METHOTREXATE [Suspect]
     Indication: RHEUMATOID ARTHRITIS
     Dosage: temporarily interrupted
     Route: 058
     Dates: start: 20100817, end: 20120127
  3. METHOTREXATE [Suspect]
     Route: 058
     Dates: start: 20120424
  4. FOLIC ACID [Concomitant]
     Route: 065
     Dates: start: 201009, end: 20120201
  5. FLUOXETINE [Concomitant]
     Route: 065
     Dates: start: 20100204, end: 20120201
  6. OMEPRAZOLE [Concomitant]
     Route: 065
     Dates: start: 201103, end: 20120201
  7. OMEPRAZOLE [Concomitant]
     Route: 065
     Dates: start: 20120214, end: 20120228
  8. OMEPRAZOLE [Concomitant]
     Route: 065
     Dates: start: 20120229
  9. CALCIUM CARBONATE [Concomitant]
     Route: 065
     Dates: start: 20110301, end: 20120201
  10. VITAMIN D [Concomitant]
     Route: 065
     Dates: start: 20110301, end: 20120201
  11. DICLOFENAC [Concomitant]
     Route: 065
     Dates: start: 20100915, end: 20120201
  12. PARACETAMOL [Concomitant]
     Route: 065
     Dates: start: 20101111, end: 20120201
  13. PROPOFOL [Concomitant]
     Route: 065
     Dates: start: 20120214, end: 20120228
  14. METOCLOPRAMIDE [Concomitant]
     Route: 065
     Dates: start: 20120214, end: 20120228
  15. FENTANYL [Concomitant]
     Route: 065
     Dates: start: 20120214, end: 20120228
  16. DIPYRONE [Concomitant]
     Route: 065
     Dates: start: 20120215, end: 20120222
  17. CEFIXIME [Concomitant]
     Route: 065
     Dates: start: 20120214, end: 20120217
  18. CLINDAMYCIN [Concomitant]
     Route: 065
     Dates: start: 20120214, end: 20120217

REACTIONS (2)
  - Joint dislocation [Recovered/Resolved with Sequelae]
  - Myocardial infarction [Recovered/Resolved with Sequelae]
